FAERS Safety Report 15146496 (Version 21)
Quarter: 2022Q4

REPORT INFORMATION
  Report Type: Report from Study
  Country: CA (occurrence: CA)
  Receive Date: 20180715
  Receipt Date: 20221013
  Transmission Date: 20230112
  Serious: Yes (Death, Hospitalization, Other)
  Sender: FDA-Public Use
  Company Number: PHHY2018CA039195

PATIENT
  Age: 84 Year
  Sex: Male

DRUGS (10)
  1. SANDOSTATIN LAR DEPOT [Suspect]
     Active Substance: OCTREOTIDE ACETATE
     Indication: Carcinoid tumour
     Dosage: 30 MG, Q4W (EVERY 4 WEEKS)
     Route: 030
     Dates: start: 20180608
  2. SANDOSTATIN LAR DEPOT [Suspect]
     Active Substance: OCTREOTIDE ACETATE
     Dosage: 60 MG,  Q4W (EVERY 4 WEEKS)
     Route: 030
     Dates: start: 20180608
  3. SANDOSTATIN LAR DEPOT [Suspect]
     Active Substance: OCTREOTIDE ACETATE
  4. ATORVASTATIN [Concomitant]
     Active Substance: ATORVASTATIN
     Indication: Product used for unknown indication
     Dosage: UNK
     Route: 048
  5. PERINDOPRIL [Concomitant]
     Active Substance: PERINDOPRIL
     Indication: Blood pressure measurement
     Dosage: 2 MG, QD
     Route: 048
     Dates: start: 20200922
  6. JANUMET [Concomitant]
     Active Substance: METFORMIN HYDROCHLORIDE\SITAGLIPTIN PHOSPHATE
     Indication: Product used for unknown indication
     Dosage: UNK
     Route: 048
  7. LANTUS [Concomitant]
     Active Substance: INSULIN GLARGINE
     Indication: Type 2 diabetes mellitus
     Dosage: 7 ENZYME UNIT, QD
     Route: 058
  8. HYDROCORTISONE [Concomitant]
     Active Substance: HYDROCORTISONE
     Indication: Product used for unknown indication
     Dosage: UNK
     Route: 065
  9. AMLODIPINE BESYLATE [Concomitant]
     Active Substance: AMLODIPINE BESYLATE
     Indication: Product used for unknown indication
     Dosage: 2.5 MG, QD
     Route: 065
  10. FLUDROCORTISONE ACETATE [Concomitant]
     Active Substance: FLUDROCORTISONE ACETATE
     Indication: Product used for unknown indication
     Dosage: 0.005 MG, QD
     Route: 065

REACTIONS (17)
  - Death [Fatal]
  - Pollakiuria [Recovering/Resolving]
  - Pulmonary oedema [Recovering/Resolving]
  - Cortisol increased [Unknown]
  - Blood pressure fluctuation [Unknown]
  - Hypertension [Unknown]
  - Fall [Unknown]
  - Pneumonia [Recovering/Resolving]
  - Pyrexia [Recovering/Resolving]
  - Blood glucose increased [Unknown]
  - Basal cell carcinoma [Unknown]
  - Second primary malignancy [Unknown]
  - Contusion [Unknown]
  - Wound [Unknown]
  - Adrenomegaly [Unknown]
  - Blood pressure systolic increased [Unknown]
  - Injection site pain [Unknown]

NARRATIVE: CASE EVENT DATE: 20180601
